FAERS Safety Report 18360500 (Version 3)
Quarter: 2022Q1

REPORT INFORMATION
  Report Type: Spontaneous
  Country: US (occurrence: US)
  Receive Date: 20201008
  Receipt Date: 20220107
  Transmission Date: 20220423
  Serious: No
  Sender: FDA-Public Use
  Company Number: US-PFIZER INC-2020385475

PATIENT
  Age: 72 Year
  Sex: Male

DRUGS (8)
  1. LYRICA [Suspect]
     Active Substance: PREGABALIN
     Indication: Cervical spinal stenosis
     Dosage: UNK
  2. LYRICA [Suspect]
     Active Substance: PREGABALIN
     Indication: Neck pain
     Dosage: 50 MG, DAILY
     Route: 048
  3. LYRICA [Suspect]
     Active Substance: PREGABALIN
     Indication: Myofascial pain syndrome
     Dosage: 50 MG, 2X/DAY
     Route: 048
  4. LYRICA [Suspect]
     Active Substance: PREGABALIN
     Dosage: 50 MG, 3X/DAY
     Route: 048
  5. LYRICA [Suspect]
     Active Substance: PREGABALIN
     Dosage: UNK [HAD HIM ON THREE BUT THEN HE RAISED HIM TO FOUR AND NOW HE^S BACK TO THREE]
  6. LYRICA [Suspect]
     Active Substance: PREGABALIN
     Dosage: 100 MG, 3X/DAY (TAKE 2 CAPSULE BY MOUTH 3 TIMES DAY)
     Route: 048
  7. LYRICA [Suspect]
     Active Substance: PREGABALIN
     Dosage: 300 MG, DAILY (LYRICA 50 MG HE HAS BEEN TAKING 6 OF THOSE A DAY)
  8. LYRICA [Suspect]
     Active Substance: PREGABALIN
     Dosage: 100 MG, 3X/DAY, (TAKE 1 CAPSULE (100 MG TOTAL) BY MOUTH 3 (THREE) TIMES A DAY)
     Route: 048

REACTIONS (6)
  - Pain [Unknown]
  - Osteoarthritis [Unknown]
  - Migraine with aura [Unknown]
  - Confusional state [Unknown]
  - Intentional product use issue [Unknown]
  - Product prescribing error [Unknown]
